FAERS Safety Report 8401395-4 (Version None)
Quarter: 2012Q2

REPORT INFORMATION
  Report Type: 
  Country: None (occurrence: None)
  Receive Date: 20120525
  Receipt Date: 20120515
  Transmission Date: 20120825
  Serious: Yes (Death)
  Sender: FDA-Public Use
  Company Number: DKLU1080570

PATIENT

DRUGS (1)
  1. ELSPAR [Suspect]
     Indication: ACUTE LYMPHOCYTIC LEUKAEMIA

REACTIONS (8)
  - BLOOD TRIGLYCERIDES DECREASED [None]
  - BLOOD FIBRINOGEN DECREASED [None]
  - BLOOD BILIRUBIN INCREASED [None]
  - DISSEMINATED INTRAVASCULAR COAGULATION [None]
  - ALANINE AMINOTRANSFERASE INCREASED [None]
  - SEPTIC SHOCK [None]
  - TOXICITY TO VARIOUS AGENTS [None]
  - MULTI-ORGAN FAILURE [None]
